FAERS Safety Report 20531624 (Version 1)
Quarter: 2022Q1

REPORT INFORMATION
  Report Type: Spontaneous
  Country: US (occurrence: None)
  Receive Date: 20220228
  Receipt Date: 20220228
  Transmission Date: 20220423
  Serious: Yes (Hospitalization)
  Sender: FDA-Public Use
  Company Number: None

PATIENT
  Age: 68 Year
  Sex: Male
  Weight: 226.9 kg

DRUGS (1)
  1. VENCLEXTA [Suspect]
     Active Substance: VENETOCLAX
     Indication: Myeloid leukaemia
     Dosage: FREQUENCY : DAILY;?
     Route: 048
     Dates: start: 20220128, end: 20220224

REACTIONS (1)
  - Thrombosis [None]

NARRATIVE: CASE EVENT DATE: 20220224
